FAERS Safety Report 5323406-5 (Version None)
Quarter: 2007Q2

REPORT INFORMATION
  Report Type: 
  Country: None (occurrence: None)
  Receive Date: 20070514
  Receipt Date: 20070508
  Transmission Date: 20071010
  Serious: Yes (Hospitalization, Other)
  Sender: FDA-Public Use
  Company Number: US-BAYER-200711421BCC

PATIENT
  Age: 58 Year
  Sex: Female
  Weight: 64 kg

DRUGS (3)
  1. ALKA SELTZER GOLD EFFERVESCENT ANTACID TABLETS [Suspect]
     Indication: MULTIPLE ALLERGIES
     Route: 048
     Dates: start: 19900101
  2. THYROID MEDICATION UNKNOWN [Concomitant]
  3. ASTHMA INHALER UNKNOWN [Concomitant]

REACTIONS (6)
  - CARDIAC FAILURE [None]
  - DYSPNOEA [None]
  - FLUID RETENTION [None]
  - JOINT SWELLING [None]
  - STAPHYLOCOCCAL INFECTION [None]
  - WEIGHT INCREASED [None]
